FAERS Safety Report 21280453 (Version 1)
Quarter: 2022Q3

REPORT INFORMATION
  Report Type: Spontaneous
  Country: US (occurrence: US)
  Receive Date: 20220901
  Receipt Date: 20220901
  Transmission Date: 20221027
  Serious: No
  Sender: FDA-Public Use
  Company Number: US-PFIZER INC-PV202200052499

PATIENT
  Age: 55 Year
  Sex: Female

DRUGS (1)
  1. IBRANCE [Suspect]
     Active Substance: PALBOCICLIB
     Indication: Breast cancer female
     Dosage: 125 MG, CYCLIC,1 TABLET ORAL DAILY FOR 21 DAYS TAKEN WITH OR WITHOUT FOOD  1-21 EVERY 28 DAYS
     Route: 048
     Dates: start: 20220816

REACTIONS (1)
  - Fatigue [Unknown]
